FAERS Safety Report 15240909 (Version 1)
Quarter: 2018Q3

REPORT INFORMATION
  Report Type: Spontaneous
  Country: US (occurrence: US)
  Receive Date: 20180711
  Receipt Date: 20180711
  Transmission Date: 20181010
  Serious: No
  Sender: FDA-Public Use
  Company Number: None

PATIENT
  Age: 34 Year
  Sex: Female
  Weight: 65.25 kg

DRUGS (3)
  1. AIMOVIG [Suspect]
     Active Substance: ERENUMAB-AOOE
     Indication: MIGRAINE
     Dosage: ?          QUANTITY:1 INJECTION(S);OTHER FREQUENCY:MONTHLY;?
     Route: 030
     Dates: start: 20180607, end: 20180711
  2. BOTOX [Concomitant]
     Active Substance: ONABOTULINUMTOXINA
  3. LEVOYXL [Concomitant]

REACTIONS (2)
  - Injection site swelling [None]
  - Injection site vesicles [None]

NARRATIVE: CASE EVENT DATE: 20180710
